FAERS Safety Report 7640603-4 (Version None)
Quarter: 2011Q3

REPORT INFORMATION
  Report Type: 
  Country: None (occurrence: None)
  Receive Date: 20110728
  Receipt Date: 20110722
  Transmission Date: 20111222
  Serious: No
  Sender: FDA-Public Use
  Company Number: US-BIOGENIDEC-2011BI027396

PATIENT
  Sex: Female

DRUGS (2)
  1. AVONEX [Suspect]
     Indication: MULTIPLE SCLEROSIS
     Route: 030
     Dates: start: 20010521, end: 20100318
  2. AVONEX [Suspect]
     Route: 030

REACTIONS (3)
  - PARALYSIS [None]
  - COGNITIVE DISORDER [None]
  - VISUAL IMPAIRMENT [None]
